FAERS Safety Report 7543073-X (Version None)
Quarter: 2011Q2

REPORT INFORMATION
  Report Type: 
  Country: None (occurrence: None)
  Receive Date: 20110613
  Receipt Date: 20110603
  Transmission Date: 20111010
  Serious: Yes (Hospitalization)
  Sender: FDA-Public Use
  Company Number: PHFR2011GB03461

PATIENT
  Sex: Female

DRUGS (2)
  1. RITALIN [Suspect]
     Indication: ATTENTION DEFICIT/HYPERACTIVITY DISORDER
     Dosage: 200 MG, TID
     Route: 048
     Dates: start: 20010101
  2. OLANZAPINE [Concomitant]
     Indication: MANIA
     Dosage: 10 MG, UNK
     Route: 048
     Dates: start: 20110511

REACTIONS (1)
  - MANIA [None]
